FAERS Safety Report 10744904 (Version 1)
Quarter: 2015Q1

REPORT INFORMATION
  Report Type: Spontaneous
  Country: CH (occurrence: None)
  Receive Date: 20150126
  Receipt Date: 20150126
  Transmission Date: 20150721
  Serious: Yes (Other)
  Sender: FDA-Public Use
  Company Number: 20150026

PATIENT
  Age: 90 Year
  Sex: Male
  Weight: 102 kg

DRUGS (9)
  1. ALTACE [Concomitant]
     Active Substance: RAMIPRIL
  2. FLOMAX (TAMSULOSIN) [Concomitant]
  3. NEURALGIN (ACETYLSALICYLIC ACID) [Concomitant]
  4. TOREM (TORASEMIDE) [Concomitant]
     Active Substance: TORSEMIDE
  5. FERINJECT [Suspect]
     Active Substance: FERRIC CARBOXYMALTOSE
     Indication: PRODUCT USED FOR UNKNOWN INDICATION
     Dosage: TOTAL OF 10 INFUSIONS, INTRAVENOUS DRIP?
     Route: 041
     Dates: start: 201403, end: 2014
  6. DEMADEX (TORASEMIDE) [Concomitant]
  7. NOVAMINSULFON (METAMIZOLE SODIUM) [Concomitant]
     Active Substance: METAMIZOLE SODIUM
  8. FERINJECT [Suspect]
     Active Substance: FERRIC CARBOXYMALTOSE
     Indication: IRON DEFICIENCY ANAEMIA
     Dosage: 500 MG (1 IN 1 TOTAL), INTRAVENOUS DRIP?
     Route: 041
     Dates: start: 20141013, end: 20141013
  9. PANTOZOL (PANTOPRAZOLE SODIUM SESQUITHYDRATE) [Concomitant]

REACTIONS (6)
  - Haemorrhoids [None]
  - Diverticulum intestinal [None]
  - Large intestine polyp [None]
  - Hepatitis cholestatic [None]
  - Chronic gastritis [None]
  - Rectal prolapse [None]

NARRATIVE: CASE EVENT DATE: 20141112
